FAERS Safety Report 9983350 (Version 1)
Quarter: 2014Q1

REPORT INFORMATION
  Report Type: Spontaneous
  Country: US (occurrence: US)
  Receive Date: 20140307
  Receipt Date: 20140307
  Transmission Date: 20141002
  Serious: Yes (Other)
  Sender: FDA-Public Use
  Company Number: US-SA-2014SA028071

PATIENT
  Age: 78 Year
  Sex: Female

DRUGS (2)
  1. AMBIEN [Suspect]
     Route: 065
  2. AMBIEN [Suspect]
     Route: 065

REACTIONS (7)
  - Oesophageal carcinoma [Unknown]
  - Malaise [Unknown]
  - Nervousness [Unknown]
  - Adverse event [Unknown]
  - Dizziness [Unknown]
  - Fall [Unknown]
  - Depression [Unknown]
